FAERS Safety Report 7527044-5 (Version None)
Quarter: 2011Q2

REPORT INFORMATION
  Report Type: 
  Country: None (occurrence: None)
  Receive Date: 20110606
  Receipt Date: 20110524
  Transmission Date: 20111010
  Serious: Yes (Hospitalization, Other)
  Sender: FDA-Public Use
  Company Number: CA-GENENTECH-293364

PATIENT
  Sex: Female

DRUGS (2)
  1. OMALIZUMAB [Suspect]
     Indication: ASTHMA
     Dosage: 150 MG, Q4W
     Route: 058
     Dates: start: 20080616
  2. OMALIZUMAB [Suspect]
     Dosage: 150 MG, 1/MONTH
     Dates: start: 20100304

REACTIONS (9)
  - NASAL POLYPS [None]
  - BLOOD PRESSURE DECREASED [None]
  - DYSPNOEA [None]
  - ASTHMA [None]
  - WHEEZING [None]
  - INCREASED UPPER AIRWAY SECRETION [None]
  - NASOPHARYNGITIS [None]
  - NASAL CONGESTION [None]
  - LUNG INFECTION [None]
